FAERS Safety Report 8988715 (Version 1)
Quarter: 2012Q4

REPORT INFORMATION
  Report Type: Spontaneous
  Country: DK (occurrence: None)
  Receive Date: 20121219
  Receipt Date: 20121219
  Transmission Date: 20130627
  Serious: Yes (Hospitalization)
  Sender: FDA-Public Use
  Company Number: 2012MA014112

PATIENT
  Age: 73 Year
  Sex: Male

DRUGS (2)
  1. OXALIPLATIN [Suspect]
     Indication: CHEMOTHERAPY
     Route: 042
     Dates: start: 20121128, end: 20121128
  2. BETA BLOCKERS, NOS [Concomitant]

REACTIONS (7)
  - Pallor [None]
  - Chills [None]
  - Presyncope [None]
  - Unresponsive to stimuli [None]
  - Sinus bradycardia [None]
  - Blood pressure immeasurable [None]
  - Infusion related reaction [None]
